FAERS Safety Report 8416896-2 (Version None)
Quarter: 2012Q2

REPORT INFORMATION
  Report Type: 
  Country: None (occurrence: None)
  Receive Date: 20120606
  Receipt Date: 20120604
  Transmission Date: 20120825
  Serious: Yes (Other)
  Sender: FDA-Public Use
  Company Number: PHEH2012US009866

PATIENT
  Sex: Female

DRUGS (1)
  1. TOBI [Suspect]
     Dosage: 60 MG, UNK
     Dates: start: 20110701, end: 20120502

REACTIONS (2)
  - CONDITION AGGRAVATED [None]
  - PULMONARY FUNCTION TEST DECREASED [None]
